FAERS Safety Report 19626207 (Version 1)
Quarter: 2021Q3

REPORT INFORMATION
  Report Type: Other
  Country: IT (occurrence: IT)
  Receive Date: 20210729
  Receipt Date: 20210729
  Transmission Date: 20211014
  Serious: Yes (Hospitalization, Other)
  Sender: FDA-Public Use
  Company Number: IT-VKT PHARMA PRIVATE LIMITED-000022

PATIENT
  Age: 80 Year
  Sex: Female

DRUGS (3)
  1. VALPROIC ACID. [Concomitant]
     Active Substance: VALPROIC ACID
     Indication: SEIZURE
     Dosage: 300 + 500 MG/DAY
     Route: 048
  2. LEVETIRACETAM. [Suspect]
     Active Substance: LEVETIRACETAM
     Indication: SEIZURE
     Dosage: 1000 MG BID (TWICE A DAY)
     Route: 048
  3. VALPROIC ACID. [Concomitant]
     Active Substance: VALPROIC ACID
     Indication: SEIZURE
     Dosage: 1500 MG
     Route: 048

REACTIONS (6)
  - Treatment failure [Unknown]
  - Hemiparesis [Recovered/Resolved]
  - Status epilepticus [Recovered/Resolved]
  - Aphasia [Recovered/Resolved]
  - Clonus [Recovered/Resolved]
  - Pneumonia aspiration [Recovered/Resolved]
